FAERS Safety Report 4508348-7 (Version None)
Quarter: 2004Q4

REPORT INFORMATION
  Report Type: 
  Country: None (occurrence: None)
  Receive Date: 20041123
  Receipt Date: 20040115
  Transmission Date: 20050328
  Serious: No
  Sender: FDA-Public Use
  Company Number: US-GLAXOSMITHKLINE-A0493472A

PATIENT
  Sex: Female

DRUGS (4)
  1. WELLBUTRIN SR [Suspect]
     Indication: DEPRESSION
     Dosage: 200MG PER DAY
     Route: 048
  2. TAMOXIFEN CITRATE [Concomitant]
  3. MELATONIN [Concomitant]
  4. ANTIHISTAMINE [Concomitant]
     Indication: SLEEP DISORDER

REACTIONS (2)
  - INSOMNIA [None]
  - MYALGIA [None]
